FAERS Safety Report 7037933-6 (Version None)
Quarter: 2010Q4

REPORT INFORMATION
  Report Type: 
  Country: None (occurrence: None)
  Receive Date: 20101011
  Receipt Date: 20100927
  Transmission Date: 20110411
  Serious: Yes (Other)
  Sender: FDA-Public Use
  Company Number: MX-CELGENEUS-107-20785-10092675

PATIENT
  Age: 24 Year
  Sex: Female

DRUGS (3)
  1. THALIDOMIDE [Suspect]
     Route: 048
  2. THALIDOMIDE [Suspect]
     Route: 048
  3. THALIDOMIDE [Suspect]
     Route: 048

REACTIONS (2)
  - DRUG EXPOSURE DURING PREGNANCY [None]
  - SOMNOLENCE [None]
